FAERS Safety Report 8764395 (Version 2)
Quarter: 2012Q4

REPORT INFORMATION
  Report Type: 
  Country: JP (occurrence: JP)
  Receive Date: 20120831
  Receipt Date: 20120914
  Transmission Date: 20130627
  Serious: Yes (Death, Other)
  Sender: FDA-Public Use
  Company Number: PHHY2012JP074490

PATIENT
  Age: 30 Year
  Sex: Female

DRUGS (12)
  1. NEORAL [Suspect]
     Indication: GRAFT VERSUS HOST DISEASE
     Dosage: 200 mg, daily dose
     Route: 048
     Dates: start: 20080921, end: 20090104
  2. SANDIMMUN [Suspect]
     Indication: GRAFT VERSUS HOST DISEASE
     Dosage: 250 mg, daily dose
     Route: 041
     Dates: start: 20090105
  3. PREDNISOLONE [Suspect]
     Indication: BONE MARROW TRANSPLANT
     Dosage: 40 mg, daily dose
     Route: 048
     Dates: start: 20080921, end: 20081128
  4. PREDNISOLONE [Suspect]
     Dosage: 20 mg, daily dose
     Route: 048
     Dates: start: 20081129, end: 20081226
  5. PREDNISOLONE [Suspect]
     Dosage: 15 mg, daily dose
     Route: 048
     Dates: start: 20081227
  6. ACYCLOVIR [Concomitant]
  7. GANCICLOVIR [Concomitant]
  8. FOSCARNET [Concomitant]
  9. DENOSINE [Concomitant]
     Indication: GRAFT VERSUS HOST DISEASE
     Dosage: 200 mg, daily dose
     Route: 042
     Dates: start: 20090102
  10. THYMOGLOBULINE [Concomitant]
     Dosage: 95 mg, UNK
     Route: 042
     Dates: start: 20090111
  11. ZOVIRAX [Concomitant]
     Dosage: 1000 mg, UNK
     Route: 048
     Dates: start: 20090219, end: 20090407
  12. FOSCAVIR [Concomitant]
     Dosage: 6000 mg, UNK
     Route: 042
     Dates: start: 20090219, end: 20090407

REACTIONS (13)
  - Multi-organ failure [Fatal]
  - Fungal infection [Fatal]
  - Hepatic failure [Fatal]
  - Renal failure [Fatal]
  - Pericarditis [Fatal]
  - Lower respiratory tract infection bacterial [Fatal]
  - Lower respiratory tract infection fungal [Fatal]
  - Pulmonary congestion [Fatal]
  - Histiocytosis haematophagic [Unknown]
  - Subarachnoid haemorrhage [Unknown]
  - Disseminated intravascular coagulation [Unknown]
  - Blood stem cell transplant failure [Unknown]
  - Cytomegalovirus infection [Unknown]
